FAERS Safety Report 23930113 (Version 1)
Quarter: 2024Q2

REPORT INFORMATION
  Report Type: Spontaneous
  Country: SI (occurrence: SI)
  Receive Date: 20240601
  Receipt Date: 20240601
  Transmission Date: 20240715
  Serious: Yes (Disabling)
  Sender: FDA-Public Use
  Company Number: SI-AMGEN-USASP2024104462

PATIENT
  Age: 4 Year
  Sex: Male
  Weight: 18 kg

DRUGS (3)
  1. RAVICTI [Suspect]
     Active Substance: GLYCEROL PHENYLBUTYRATE
     Indication: Hyperornithinaemia-hyperammonaemia-homocitrullinuria syndrome
     Dosage: 0.8 MILLILITER, TID
     Route: 048
     Dates: start: 20231125
  2. CITRULLINE [Concomitant]
     Active Substance: CITRULLINE
     Indication: Ammonia increased
     Dosage: 900 MILLIGRAM, BID
     Dates: start: 20231025
  3. ARGININE [Concomitant]
     Active Substance: ARGININE
     Indication: Ammonia increased
     Dosage: 900 MILLIGRAM, BID
     Dates: start: 20231025

REACTIONS (2)
  - Neuropathy peripheral [Not Recovered/Not Resolved]
  - Off label use [Unknown]

NARRATIVE: CASE EVENT DATE: 20231125
